FAERS Safety Report 4305356-6 (Version None)
Quarter: 2004Q1

REPORT INFORMATION
  Report Type: 
  Country: None (occurrence: None)
  Receive Date: 20040226
  Receipt Date: 20030730
  Transmission Date: 20041129
  Serious: Yes (Disabling)
  Sender: FDA-Public Use
  Company Number: US-BRISTOL-MYERS SQUIBB COMPANY-12340444

PATIENT

DRUGS (2)
  1. TAXOL [Suspect]
     Indication: CARCINOMA
     Route: 042
  2. PACLITAXEL [Suspect]
     Dosage: 6 MG.ML
     Route: 042

REACTIONS (1)
  - NEUROPATHY PERIPHERAL [None]
